FAERS Safety Report 21497058 (Version 1)
Quarter: 2022Q4

REPORT INFORMATION
  Report Type: Spontaneous
  Country: US (occurrence: US)
  Receive Date: 20221023
  Receipt Date: 20221023
  Transmission Date: 20230112
  Serious: No
  Sender: FDA-Public Use
  Company Number: US-CELLTRION INC.-2022US012376

PATIENT

DRUGS (1)
  1. INFLECTRA [Suspect]
     Active Substance: INFLIXIMAB-DYYB
     Indication: Product used for unknown indication
     Dosage: 5 MG/KG FREQUENCY: 0,2,6 THEN Q 8 WEEKS QUANTITY: 4 REFILLS: 12

REACTIONS (3)
  - Unevaluable event [Unknown]
  - Product storage error [Unknown]
  - Product dose omission issue [Unknown]
